FAERS Safety Report 4758738-2 (Version None)
Quarter: 2005Q3

REPORT INFORMATION
  Report Type: 
  Country: None (occurrence: None)
  Receive Date: 20050901
  Receipt Date: 20050829
  Transmission Date: 20060218
  Serious: Yes (Death, Other)
  Sender: FDA-Public Use
  Company Number: JP-ABBOTT-05P-087-0309628-00

PATIENT
  Age: 69 Year
  Sex: Male
  Weight: 54 kg

DRUGS (14)
  1. WARFARIN [Suspect]
     Indication: PULMONARY EMBOLISM
     Route: 050
  2. PROPOFOL [Concomitant]
     Indication: DRUG USE FOR UNKNOWN INDICATION
  3. HEPARIN [Concomitant]
     Indication: ANTICOAGULANT THERAPY
  4. HEPARIN [Concomitant]
  5. HEPARIN [Concomitant]
  6. UROKINASE [Concomitant]
     Indication: DRUG USE FOR UNKNOWN INDICATION
  7. ANTITHROMBIN III [Concomitant]
     Indication: DRUG USE FOR UNKNOWN INDICATION
  8. MICONAZOLE [Concomitant]
     Indication: DRUG USE FOR UNKNOWN INDICATION
  9. BACTRIM [Concomitant]
     Indication: DRUG USE FOR UNKNOWN INDICATION
  10. MINOCYCLINE [Concomitant]
     Indication: DRUG USE FOR UNKNOWN INDICATION
  11. RANITIDINE HCL [Concomitant]
     Indication: DRUG USE FOR UNKNOWN INDICATION
  12. SIVELESTAT [Concomitant]
     Indication: NEUTROPHIL FUNCTION DISORDER
  13. PARENTERAL [Concomitant]
     Indication: PARENTERAL NUTRITION
     Dosage: MIXTURE OF ELECTROLYTES, GLUCOSE, AND AMINO ACIDS
  14. INSULIN [Concomitant]
     Indication: HYPERGLYCAEMIA
     Dosage: CONTINUOUS INFUSION
     Route: 042

REACTIONS (9)
  - COAGULOPATHY [None]
  - DISSEMINATED INTRAVASCULAR COAGULATION [None]
  - DRUG HYPERSENSITIVITY [None]
  - DRUG INTERACTION [None]
  - INTERNATIONAL NORMALISED RATIO INCREASED [None]
  - MULTI-ORGAN FAILURE [None]
  - RESPIRATORY FAILURE [None]
  - SEPTIC SHOCK [None]
  - SYSTEMIC INFLAMMATORY RESPONSE SYNDROME [None]
